FAERS Safety Report 10032975 (Version 3)
Quarter: 2014Q2

REPORT INFORMATION
  Report Type: Report from Study
  Country: US (occurrence: US)
  Receive Date: 20140324
  Receipt Date: 20140428
  Transmission Date: 20141212
  Serious: Yes (Death)
  Sender: FDA-Public Use
  Company Number: US-BAYER-2014-029978

PATIENT
  Age: 59 Year
  Sex: Male

DRUGS (15)
  1. STIVARGA [Suspect]
     Indication: COLON CANCER METASTATIC
     Dosage: 160 MG, QD, 4X40MG
     Route: 048
     Dates: start: 20140129, end: 20140204
  2. STIVARGA [Suspect]
     Indication: METASTASES TO LIVER
  3. LACTULOSE [Concomitant]
  4. BACTOPEN [Concomitant]
  5. DEXAMETHASONE [DEXAMETHASONE] [Concomitant]
  6. DIPHENHYDRAMINE [Concomitant]
  7. ENOXAPARIN [Concomitant]
  8. FENTANYL [Concomitant]
     Dosage: UNK
  9. FUROSEMIDE [Concomitant]
  10. LORAZEPAM [Concomitant]
  11. MEGESTROL [Concomitant]
  12. NEXIUM [Concomitant]
  13. ONDANSETRON [Concomitant]
  14. OXYCODONE [Concomitant]
  15. PROCHLORPERAZINE [Concomitant]

REACTIONS (4)
  - Hypersensitivity vasculitis [Fatal]
  - Blood bilirubin increased [Fatal]
  - Ammonia increased [Fatal]
  - Colon cancer metastatic [Fatal]
